FAERS Safety Report 9273171 (Version 2)
Quarter: 2013Q2

REPORT INFORMATION
  Report Type: Spontaneous
  Country: IN (occurrence: IN)
  Receive Date: 20130506
  Receipt Date: 20130507
  Transmission Date: 20140414
  Serious: Yes (Death, Other)
  Sender: FDA-Public Use
  Company Number: PHHY2013IN043934

PATIENT
  Age: 16 Year
  Sex: Female

DRUGS (9)
  1. METHOTREXATE [Suspect]
     Indication: NON-HODGKIN^S LYMPHOMA
     Dosage: 1 DF, OT; (5 G/M2, OVER 24 HOURS)
  2. LEUCOVORIN [Concomitant]
     Indication: NON-HODGKIN^S LYMPHOMA
     Dosage: 30 MG, AT HOUR 42
  3. LEUCOVORIN [Concomitant]
     Dosage: 15 MG, AT HOURS 48, 54 AND 60
  4. IFOSFAMIDE [Concomitant]
     Dosage: 1 G, QD
  5. ETOPOSIDE [Concomitant]
     Dosage: 100 MG, ON DAY 4 AND 5
  6. MESNA [Concomitant]
  7. CYTOSINE ARABINOSIDE [Concomitant]
     Dosage: 300 MG, ON DAY 4 AND 5
  8. DEXAMETHASONE [Concomitant]
     Dosage: 10 MG, FOR FIVE DAYS
  9. VINCRISTINE [Concomitant]
     Dosage: 2 MG, UNK

REACTIONS (10)
  - Sepsis [Fatal]
  - Multi-organ failure [Fatal]
  - Toxic epidermal necrolysis [Fatal]
  - Bone marrow failure [Unknown]
  - Hyperbilirubinaemia [Unknown]
  - Oedema peripheral [Fatal]
  - Erythema [Fatal]
  - Skin erosion [Fatal]
  - Blister [Fatal]
  - Pain [Fatal]
